FAERS Safety Report 9717093 (Version 3)
Quarter: 2015Q3

REPORT INFORMATION
  Report Type: Spontaneous
  Country: US (occurrence: US)
  Receive Date: 20131127
  Receipt Date: 20150803
  Transmission Date: 20151125
  Serious: No
  Sender: FDA-Public Use
  Company Number: US-GILEAD-2009-0020152

PATIENT
  Age: 87 Year
  Sex: Male
  Weight: 74.84 kg

DRUGS (24)
  1. NEXIUM [Concomitant]
     Active Substance: ESOMEPRAZOLE MAGNESIUM
  2. OXYGEN. [Concomitant]
     Active Substance: OXYGEN
  3. HYTRIN [Concomitant]
     Active Substance: TERAZOSIN HYDROCHLORIDE
  4. PEPCID [Concomitant]
     Active Substance: FAMOTIDINE
  5. IRON [Concomitant]
     Active Substance: IRON
  6. VITAMIN D [Concomitant]
     Active Substance: CHOLECALCIFEROL
  7. SALINE NASAL SPRAY [Concomitant]
     Active Substance: SODIUM CHLORIDE
  8. LETAIRIS [Suspect]
     Active Substance: AMBRISENTAN
     Indication: PULMONARY ARTERIAL HYPERTENSION
     Route: 048
     Dates: start: 20081217
  9. COUMADIN [Concomitant]
     Active Substance: WARFARIN SODIUM
  10. PROSCAR [Concomitant]
     Active Substance: FINASTERIDE
  11. BENADRYL [Concomitant]
     Active Substance: DIPHENHYDRAMINE HYDROCHLORIDE
  12. REVATIO [Concomitant]
     Active Substance: SILDENAFIL CITRATE
  13. LASIX [Concomitant]
     Active Substance: FUROSEMIDE
  14. SPIRONOLACTONE. [Concomitant]
     Active Substance: SPIRONOLACTONE
  15. OCUVITE [Concomitant]
     Active Substance: VITAMINS
  16. ATACAND [Concomitant]
     Active Substance: CANDESARTAN CILEXETIL
  17. VIACTIV [Concomitant]
     Active Substance: CALCIUM\VITAMIN D\VITAMIN K5
  18. NASONEX [Concomitant]
     Active Substance: MOMETASONE FUROATE
  19. MULTIVITAMIN [Concomitant]
     Active Substance: VITAMINS
  20. FOLGARD [Concomitant]
  21. VITAMIN B-50 [Concomitant]
  22. ATENOLOL. [Concomitant]
     Active Substance: ATENOLOL
  23. SYNTHROID [Concomitant]
     Active Substance: LEVOTHYROXINE SODIUM
  24. MAGNESIUM GLUCONATE [Concomitant]
     Active Substance: MAGNESIUM GLUCONATE

REACTIONS (2)
  - Weight increased [Unknown]
  - Oedema peripheral [Unknown]
